FAERS Safety Report 23952997 (Version 6)
Quarter: 2024Q3

REPORT INFORMATION
  Report Type: Spontaneous
  Country: IT (occurrence: IT)
  Receive Date: 20240608
  Receipt Date: 20240921
  Transmission Date: 20241016
  Serious: Yes (Life-Threatening, Hospitalization)
  Sender: ROCHE
  Company Number: IT-PFIZER INC-PV202400064689

PATIENT
  Age: 46 Year
  Sex: Male
  Weight: 74 kg

DRUGS (55)
  1. RITUXIMAB [Suspect]
     Active Substance: RITUXIMAB
     Indication: Diffuse large B-cell lymphoma stage III
     Dosage: 375 MG/M2
     Route: 065
     Dates: start: 20240430, end: 20240430
  2. VINCRISTINE SULFATE [Suspect]
     Active Substance: VINCRISTINE SULFATE
     Indication: Diffuse large B-cell lymphoma stage III
     Dosage: 1.4 MG/M2 IV (RECOMMENDED CAP OF 2 MG)
     Route: 042
     Dates: start: 20240430, end: 20240430
  3. DOXORUBICIN HYDROCHLORIDE [Suspect]
     Active Substance: DOXORUBICIN HYDROCHLORIDE
     Indication: Diffuse large B-cell lymphoma stage III
     Dosage: 50 MG/M2
     Route: 065
     Dates: start: 20240430, end: 20240430
  4. CYCLOPHOSPHAMIDE [Concomitant]
     Active Substance: CYCLOPHOSPHAMIDE
  5. ENOXAPARIN [Concomitant]
     Active Substance: ENOXAPARIN
  6. DELORAZEPAM [Concomitant]
     Active Substance: DELORAZEPAM
  7. FENTANYL [Concomitant]
     Active Substance: FENTANYL\FENTANYL CITRATE
  8. HYDROCORTISONE [Concomitant]
     Active Substance: HYDROCORTISONE\HYDROCORTISONE ACETATE
     Dates: start: 20240415, end: 20240430
  9. MORPHINE HYDROCHLORIDE [Concomitant]
     Active Substance: MORPHINE HYDROCHLORIDE
  10. FLUCONAZOLE [Concomitant]
     Active Substance: FLUCONAZOLE
  11. DEXAMETHASONE [Concomitant]
     Active Substance: DEXAMETHASONE
  12. LYRICA [Concomitant]
     Active Substance: PREGABALIN
  13. SENNOSIDES [Concomitant]
     Active Substance: SENNOSIDES
  14. FENTANYL [Concomitant]
     Active Substance: FENTANYL\FENTANYL CITRATE
  15. ERYTHROPOIETIN [Concomitant]
     Active Substance: ERYTHROPOIETIN
  16. BACTRIM [Concomitant]
     Active Substance: SULFAMETHOXAZOLE\TRIMETHOPRIM
  17. PREDNISONE [Concomitant]
     Active Substance: PREDNISONE
  18. NEOSTIGMINE METHYLSULFATE [Concomitant]
     Active Substance: NEOSTIGMINE METHYLSULFATE
  19. TALOFEN [Concomitant]
     Active Substance: PROMAZINE HYDROCHLORIDE
  20. MOVICOL [Concomitant]
     Active Substance: POLYETHYLENE GLYCOL 3350\POTASSIUM CHLORIDE\SODIUM BICARBONATE\SODIUM CHLORIDE
  21. NALDEMEDINE TOSYLATE [Concomitant]
     Active Substance: NALDEMEDINE TOSYLATE
  22. TRAMADOL [Concomitant]
     Active Substance: TRAMADOL\TRAMADOL HYDROCHLORIDE
  23. FLAVOXATE;PROPYPHENAZONE [Concomitant]
  24. LEVOSULPIRIDE [Concomitant]
     Active Substance: LEVOSULPIRIDE
  25. VINCRISTINE [Concomitant]
     Active Substance: VINCRISTINE
  26. NALOXONE HYDROCHLORIDE\OXYCODONE HYDROCHLORIDE [Concomitant]
     Active Substance: NALOXONE HYDROCHLORIDE\OXYCODONE HYDROCHLORIDE
  27. FUROSEMIDE [Concomitant]
     Active Substance: FUROSEMIDE
  28. ACETAMINOPHEN [Concomitant]
     Active Substance: ACETAMINOPHEN
  29. NALOXONE [Concomitant]
     Active Substance: NALOXONE
  30. DOXORUBICIN [Concomitant]
     Active Substance: DOXORUBICIN
  31. LASIX [Concomitant]
     Active Substance: FUROSEMIDE
  32. FILGRASTIM [Concomitant]
     Active Substance: FILGRASTIM
  33. RABEPRAZOLE [Concomitant]
     Active Substance: RABEPRAZOLE
  34. URSODIOL [Concomitant]
     Active Substance: URSODIOL
  35. DEXAMETHASONE [Concomitant]
     Active Substance: DEXAMETHASONE
  36. NALDEMEDINE [Concomitant]
     Active Substance: NALDEMEDINE
  37. CANRENOATE POTASSIUM [Concomitant]
     Active Substance: CANRENOATE POTASSIUM
  38. DEXMEDETOMIDINE HYDROCHLORIDE [Concomitant]
     Active Substance: DEXMEDETOMIDINE HYDROCHLORIDE
  39. KETOROLAC TROMETHAMINE [Concomitant]
     Active Substance: KETOROLAC TROMETHAMINE
  40. LEVOFLOXACIN [Concomitant]
     Active Substance: LEVOFLOXACIN
  41. PANTOPRAZOLE [Concomitant]
     Active Substance: PANTOPRAZOLE
  42. TAMSULOSIN HYDROCHLORIDE [Concomitant]
     Active Substance: TAMSULOSIN HYDROCHLORIDE
  43. DEXAMETHASONE PHOSPHATE [Concomitant]
     Active Substance: DEXAMETHASONE PHOSPHATE
  44. ZANUBRUTINIB [Concomitant]
     Active Substance: ZANUBRUTINIB
  45. FOLIC ACID [Concomitant]
     Active Substance: FOLIC ACID
  46. ALLOPURINOL [Concomitant]
     Active Substance: ALLOPURINOL
  47. PALONOSETRON [Concomitant]
     Active Substance: PALONOSETRON
  48. CHLORPHENIRAMINE MALEATE [Concomitant]
     Active Substance: CHLORPHENIRAMINE MALEATE
  49. ACYCLOVIR [Concomitant]
     Active Substance: ACYCLOVIR
  50. RASBURICASE [Concomitant]
     Active Substance: RASBURICASE
  51. ONDANSETRON [Concomitant]
     Active Substance: ONDANSETRON
  52. PREDNISONE [Concomitant]
     Active Substance: PREDNISONE
  53. GLUCOSE;POTASSIUM CHLORIDE [Concomitant]
  54. AMINO ACIDS\DEXTROSE\ELECTROLYTES NOS\SOYBEAN OIL [Concomitant]
     Active Substance: AMINO ACIDS\DEXTROSE\ELECTROLYTES NOS\SOYBEAN OIL
  55. INSULIN NOS [Concomitant]
     Active Substance: INSULIN NOS

REACTIONS (2)
  - Renal ischaemia [Not Recovered/Not Resolved]
  - Febrile neutropenia [Recovered/Resolved]

NARRATIVE: CASE EVENT DATE: 20240509
